FAERS Safety Report 5971615-4 (Version None)
Quarter: 2008Q4

REPORT INFORMATION
  Report Type: 
  Country: None (occurrence: None)
  Receive Date: 20081201
  Receipt Date: 20081124
  Transmission Date: 20090506
  Serious: No
  Sender: FDA-Public Use
  Company Number: US-JNJFOC-20081106048

PATIENT
  Sex: Male
  Weight: 102.06 kg

DRUGS (16)
  1. FENTANYL TRANSDERMAL SYSTEM [Suspect]
     Indication: PROCEDURAL PAIN
     Route: 062
  2. FENTANYL TRANSDERMAL SYSTEM [Suspect]
     Indication: PROCEDURAL PAIN
     Route: 062
  3. DURAGESIC-100 [Suspect]
     Indication: BONE PAIN
     Route: 062
  4. DURAGESIC-100 [Suspect]
     Indication: PROCEDURAL PAIN
     Route: 062
  5. FENTANYL TRANSDERMAL SYSTEM [Suspect]
     Indication: PROCEDURAL PAIN
     Route: 062
  6. LYRICA [Concomitant]
     Indication: MUSCLE SPASMS
     Route: 048
  7. AMBIEN [Concomitant]
     Indication: SLEEP DISORDER
     Dosage: BEDTIME
     Route: 048
  8. DESYREL [Concomitant]
     Indication: SLEEP DISORDER
     Dosage: 1-2 AT BEDTIME
     Route: 048
  9. NARCO [Concomitant]
     Indication: PAIN
     Dosage: 10/325MG/ 1-2 EVERY 4-6 HOURS
     Route: 048
  10. ZANAFLEX [Concomitant]
     Indication: MUSCLE SPASMS
     Dosage: 1-1/2 TAB
     Route: 048
  11. WELLBUTRIN XL [Concomitant]
     Indication: DEPRESSION
     Route: 048
  12. MULTI-VITAMIN [Concomitant]
     Indication: GENERAL PHYSICAL CONDITION
     Route: 048
  13. DHEA SUPPLEMENT [Concomitant]
     Route: 048
  14. MIRALAX [Concomitant]
     Route: 048
  15. TRAZODONE HCL [Concomitant]
     Indication: SLEEP DISORDER
     Dosage: AT NIGHT
     Route: 048
  16. KLONOPIN [Concomitant]
     Indication: MUSCLE SPASMS
     Dosage: AS NEEDED
     Route: 048

REACTIONS (6)
  - APPLICATION SITE ERYTHEMA [None]
  - APPLICATION SITE SCAR [None]
  - APPLICATION SITE VESICLES [None]
  - HYPERHIDROSIS [None]
  - INAPPROPRIATE SCHEDULE OF DRUG ADMINISTRATION [None]
  - OFF LABEL USE [None]
